FAERS Safety Report 23406947 (Version 1)
Quarter: 2024Q1

REPORT INFORMATION
  Report Type: Spontaneous
  Country: US (occurrence: US)
  Receive Date: 20240116
  Receipt Date: 20240116
  Transmission Date: 20240410
  Serious: No
  Sender: FDA-Public Use
  Company Number: US-BRACCO-2023US05358

PATIENT

DRUGS (1)
  1. VUEWAY [Suspect]
     Active Substance: GADOPICLENOL
     Indication: Magnetic resonance imaging head
     Dosage: 10 ML, SINGLE, PUSHED SLOWLY
     Dates: start: 20231013, end: 20231013

REACTIONS (2)
  - Muscle twitching [Unknown]
  - Vomiting [Unknown]

NARRATIVE: CASE EVENT DATE: 20231013
